FAERS Safety Report 11147643 (Version 3)
Quarter: 2015Q3

REPORT INFORMATION
  Report Type: Spontaneous
  Country: JP (occurrence: JP)
  Receive Date: 20150529
  Receipt Date: 20150714
  Transmission Date: 20151125
  Serious: Yes (Life-Threatening, Disabling)
  Sender: FDA-Public Use
  Company Number: JP-009507513-1505JPN011324

PATIENT
  Age: 62 Year
  Sex: Male
  Weight: 59 kg

DRUGS (8)
  1. ULTIVA [Suspect]
     Active Substance: REMIFENTANIL HYDROCHLORIDE
     Indication: INDUCTION OF ANAESTHESIA
     Dosage: DAILY DOSE UNKNOWN
     Route: 041
     Dates: start: 20141209, end: 20141209
  2. ULTIVA [Suspect]
     Active Substance: REMIFENTANIL HYDROCHLORIDE
     Dosage: DAILY DOSE UNKNOWN
     Route: 041
     Dates: start: 20150220, end: 20150220
  3. ESLAX [Suspect]
     Active Substance: ROCURONIUM BROMIDE
     Indication: NEUROMUSCULAR BLOCKING THERAPY
     Dosage: 40 MG, QD
     Route: 042
     Dates: start: 20141209, end: 20141209
  4. PROPOFOL. [Suspect]
     Active Substance: PROPOFOL
     Indication: INDUCTION OF ANAESTHESIA
     Dosage: 60 MG, QD
     Route: 042
     Dates: start: 20140209, end: 20140209
  5. HEXIZAC [Concomitant]
     Indication: STERILISATION
  6. ESLAX [Suspect]
     Active Substance: ROCURONIUM BROMIDE
     Dosage: 50 MG, QD
     Route: 042
     Dates: start: 20150220, end: 20150220
  7. PROPOFOL. [Suspect]
     Active Substance: PROPOFOL
     Dosage: 60 MG, QD
     Route: 042
     Dates: start: 20150220, end: 20150220
  8. SEVOFLURANE. [Suspect]
     Active Substance: SEVOFLURANE
     Indication: INDUCTION OF ANAESTHESIA
     Dosage: DAILY DOSE UNKNOWN
     Route: 055
     Dates: start: 20141209, end: 20141209

REACTIONS (2)
  - Anaphylactic reaction [Recovered/Resolved]
  - Anaphylactic reaction [Recovered/Resolved]

NARRATIVE: CASE EVENT DATE: 20141209
